FAERS Safety Report 23160027 (Version 2)
Quarter: 2024Q1

REPORT INFORMATION
  Report Type: Report from Study
  Country: US (occurrence: US)
  Receive Date: 20231108
  Receipt Date: 20240219
  Transmission Date: 20240410
  Serious: No
  Sender: FDA-Public Use
  Company Number: US-INCYTE CORPORATION-2023IN010675

PATIENT

DRUGS (8)
  1. JAKAFI [Suspect]
     Active Substance: RUXOLITINIB
     Indication: Essential thrombocythaemia
     Dosage: 10 MILLIGRAM, BID
     Route: 048
     Dates: start: 20230930
  2. JAKAFI [Suspect]
     Active Substance: RUXOLITINIB
     Indication: Myeloproliferative neoplasm
     Dosage: 10 MILLIGRAM, BID
     Route: 048
  3. GLUCOSAMINE [Concomitant]
     Active Substance: GLUCOSAMINE
     Indication: Product used for unknown indication
     Route: 065
  4. HYDROXYUREA [Concomitant]
     Active Substance: HYDROXYUREA
     Indication: Product used for unknown indication
     Route: 065
  5. LISINOPRIL [Concomitant]
     Active Substance: LISINOPRIL
     Indication: Product used for unknown indication
     Route: 065
  6. MAGOX [Concomitant]
     Indication: Product used for unknown indication
     Route: 065
  7. NORVASC [Concomitant]
     Active Substance: AMLODIPINE BESYLATE
     Indication: Product used for unknown indication
     Route: 065
  8. VITAMIN D3 [Concomitant]
     Active Substance: CHOLECALCIFEROL
     Indication: Product used for unknown indication
     Route: 065

REACTIONS (3)
  - Abdominal discomfort [Unknown]
  - Abdominal pain lower [Unknown]
  - Off label use [Unknown]

NARRATIVE: CASE EVENT DATE: 20230930
